FAERS Safety Report 6785551-7 (Version None)
Quarter: 2010Q2

REPORT INFORMATION
  Report Type: 
  Country: None (occurrence: None)
  Receive Date: 20100623
  Receipt Date: 20100611
  Transmission Date: 20101027
  Serious: Yes (Other)
  Sender: FDA-Public Use
  Company Number: FR-BAYER-200917267GPV

PATIENT
  Sex: Female

DRUGS (1)
  1. MIRENA [Suspect]
     Dosage: UNIT DOSE: 52 MG
     Route: 015

REACTIONS (2)
  - POSTPARTUM DEPRESSION [None]
  - PREGNANCY WITH CONTRACEPTIVE DEVICE [None]
